FAERS Safety Report 8115831-4 (Version None)
Quarter: 2012Q1

REPORT INFORMATION
  Report Type: 
  Country: None (occurrence: None)
  Receive Date: 20120206
  Receipt Date: 20120124
  Transmission Date: 20120608
  Serious: Yes (Other)
  Sender: FDA-Public Use
  Company Number: CA-ELI_LILLY_AND_COMPANY-CA201106005940

PATIENT
  Age: 65 Year
  Sex: Female

DRUGS (14)
  1. FORTEO [Suspect]
     Dosage: 20 UG, QD
     Route: 058
  2. PRILOSEC [Concomitant]
  3. PAXIL [Concomitant]
  4. ASPIRIN [Concomitant]
  5. LAX-A-DAY [Concomitant]
  6. CALTRATE PLUS [Concomitant]
  7. ESTROGENIC SUBSTANCE [Concomitant]
  8. DOCUSATE SODIUM [Concomitant]
  9. VITAMIN D [Concomitant]
  10. FENTANYL CITRATE [Concomitant]
  11. ESTER-C [Concomitant]
  12. DIGESTIVE ENZYMES [Concomitant]
  13. FORTEO [Suspect]
     Indication: OSTEOPOROSIS
     Dosage: 20 UG, QD
     Route: 058
     Dates: start: 20101108
  14. Q10 [Concomitant]

REACTIONS (7)
  - EYE DISORDER [None]
  - BLOOD IRON DECREASED [None]
  - DYSPNOEA [None]
  - ANAEMIA [None]
  - AMNESIA [None]
  - FATIGUE [None]
  - DIZZINESS [None]
